FAERS Safety Report 25709991 (Version 2)
Quarter: 2025Q3

REPORT INFORMATION
  Report Type: Spontaneous
  Country: US (occurrence: US)
  Receive Date: 20250821
  Receipt Date: 20250915
  Transmission Date: 20251020
  Serious: No
  Sender: BIOVITRUM
  Company Number: US-BIOVITRUM-2025-US-011382

PATIENT
  Age: 63 Year
  Sex: Male

DRUGS (1)
  1. DOPTELET [Suspect]
     Active Substance: AVATROMBOPAG MALEATE
     Indication: Immune thrombocytopenia
     Route: 048

REACTIONS (4)
  - General physical health deterioration [Recovered/Resolved]
  - Product packaging difficult to open [Unknown]
  - Pain in extremity [Unknown]
  - Product distribution issue [Unknown]
